FAERS Safety Report 22991675 (Version 2)
Quarter: 2024Q1

REPORT INFORMATION
  Report Type: Report from Study
  Country: US (occurrence: US)
  Receive Date: 20230927
  Receipt Date: 20240209
  Transmission Date: 20240410
  Serious: Yes (Hospitalization, Other)
  Sender: FDA-Public Use
  Company Number: US-ABBVIE-5296017

PATIENT
  Sex: Male

DRUGS (1)
  1. HUMIRA [Suspect]
     Active Substance: ADALIMUMAB
     Indication: Psoriatic arthropathy
     Dosage: CITRATE FREE, FORM STRENGTH 40 MILLIGRAM
     Route: 058
     Dates: start: 20200710

REACTIONS (14)
  - Endotracheal intubation complication [Unknown]
  - Gait inability [Recovering/Resolving]
  - Laryngitis [Unknown]
  - Pneumonia [Recovering/Resolving]
  - Nerve compression [Unknown]
  - Procedural complication [Unknown]
  - Arthralgia [Unknown]
  - Fall [Recovering/Resolving]
  - Joint injury [Unknown]
  - Pharyngeal injury [Recovering/Resolving]
  - Subdural haematoma [Recovering/Resolving]
  - Hospitalisation [Unknown]
  - Cerebral haemorrhage [Recovering/Resolving]
  - Fall [Unknown]

NARRATIVE: CASE EVENT DATE: 20230101
